FAERS Safety Report 9870823 (Version 1)
Quarter: 2014Q1

REPORT INFORMATION
  Report Type: Spontaneous
  Country: US (occurrence: None)
  Receive Date: 20140131
  Receipt Date: 20140131
  Transmission Date: 20141002
  Serious: Yes (Other)
  Sender: FDA-Public Use
  Company Number: NSR_01398_2014

PATIENT
  Age: 35 Year
  Sex: Male

DRUGS (5)
  1. HYDROXYZINE [Suspect]
  2. HEROIN [Suspect]
  3. HYDROCODONE [Suspect]
  4. ALPRAZOLAM [Suspect]
  5. OXYCODONE [Suspect]

REACTIONS (4)
  - Poisoning [None]
  - Exposure via ingestion [None]
  - Respiratory arrest [None]
  - Cardiac arrest [None]
